FAERS Safety Report 10025067 (Version 5)
Quarter: 2014Q3

REPORT INFORMATION
  Report Type: Spontaneous
  Country: US (occurrence: None)
  Receive Date: 20140314
  Receipt Date: 20140808
  Transmission Date: 20150326
  Serious: Yes (Hospitalization, Other)
  Sender: FDA-Public Use
  Company Number: 2014-US-002641

PATIENT
  Age: 68 Year
  Sex: Male

DRUGS (4)
  1. XYREM [Suspect]
     Active Substance: SODIUM OXYBATE
     Indication: APNOEA
     Route: 048
     Dates: start: 200902
  2. SYNTHROID [Concomitant]
     Active Substance: LEVOTHYROXINE SODIUM
  3. HYDROCHLOROTHIAZIDE (HYDROCHLOROTHIAZIDE) [Concomitant]
     Active Substance: HYDROCHLOROTHIAZIDE
  4. MODAFINIL (MODAFINIL) [Concomitant]
     Active Substance: MODAFINIL

REACTIONS (7)
  - Coronary artery occlusion [None]
  - Off label use [None]
  - Hyperlipidaemia [None]
  - Atrioventricular block [None]
  - Hypertension [None]
  - Cardiac disorder [None]
  - Coronary artery disease [None]
